FAERS Safety Report 25498772 (Version 1)
Quarter: 2025Q3

REPORT INFORMATION
  Report Type: Spontaneous
  Country: EU (occurrence: EU)
  Receive Date: 20250701
  Receipt Date: 20250701
  Transmission Date: 20251021
  Serious: Yes (Disabling)
  Sender: SANDOZ
  Company Number: EU-TEVA-2018-IT-881982

PATIENT
  Age: 49 Year
  Sex: Female

DRUGS (5)
  1. THYMOCYTE IMMUNE GLOBULIN NOS [Suspect]
     Active Substance: THYMOCYTE IMMUNE GLOBULIN NOS
     Indication: Prophylaxis against graft versus host disease
     Route: 065
  2. CYCLOSPORINE [Suspect]
     Active Substance: CYCLOSPORINE
     Indication: Prophylaxis against graft versus host disease
     Route: 065
  3. CYCLOPHOSPHAMIDE [Suspect]
     Active Substance: CYCLOPHOSPHAMIDE
     Indication: Product used for unknown indication
     Route: 065
  4. FLUDARABINE [Suspect]
     Active Substance: FLUDARABINE PHOSPHATE
     Indication: Product used for unknown indication
     Route: 065
  5. METHOTREXATE [Suspect]
     Active Substance: METHOTREXATE
     Indication: Prophylaxis against graft versus host disease
     Route: 065

REACTIONS (8)
  - Choroidal detachment [Recovered/Resolved]
  - Arterial disorder [Recovered/Resolved]
  - Carotid artery occlusion [Recovered/Resolved]
  - Meningitis [Recovered/Resolved]
  - Hemiparesis [Recovered/Resolved]
  - Scedosporium infection [Recovered/Resolved]
  - Aphasia [Recovered/Resolved]
  - Blindness unilateral [Not Recovered/Not Resolved]
